FAERS Safety Report 23700817 (Version 1)
Quarter: 2024Q2

REPORT INFORMATION
  Report Type: Report from Study
  Country: US (occurrence: US)
  Receive Date: 20240403
  Receipt Date: 20240403
  Transmission Date: 20240715
  Serious: Yes (Other)
  Sender: FDA-Public Use
  Company Number: US-ABBVIE-5691710

PATIENT
  Age: 67 Year
  Sex: Female
  Weight: 102 kg

DRUGS (7)
  1. HUMIRA [Suspect]
     Active Substance: ADALIMUMAB
     Indication: Rheumatoid arthritis
     Route: 058
     Dates: start: 20230728
  2. METHOTREXATE [Concomitant]
     Active Substance: METHOTREXATE
     Indication: Product used for unknown indication
  3. Covid -19 Vaccine [Concomitant]
     Indication: COVID-19 immunisation
     Dosage: 1ST DOSE , ONE IN ONCE
     Route: 030
  4. Covid -19 Vaccine [Concomitant]
     Indication: COVID-19 immunisation
     Dosage: 2ND DOSE , ONE IN ONCE
     Route: 030
  5. Covid -19 Vaccine [Concomitant]
     Indication: COVID-19 immunisation
     Dosage: 3RD DOSE , ONE IN ONCE
     Route: 030
  6. Covid -19 Vaccine [Concomitant]
     Indication: COVID-19 immunisation
     Dosage: 4 TH DOSE , ONE IN ONCE
     Route: 030
  7. Covid -19 Vaccine [Concomitant]
     Indication: COVID-19 immunisation
     Dosage: 5 TH DOSE , ONE IN ONCE
     Route: 030

REACTIONS (11)
  - Knee arthroplasty [Unknown]
  - Arthralgia [Unknown]
  - Peripheral swelling [Unknown]
  - Dysstasia [Unknown]
  - Pain in extremity [Not Recovered/Not Resolved]
  - Spinal operation [Unknown]
  - Back pain [Not Recovered/Not Resolved]
  - Musculoskeletal disorder [Unknown]
  - Bunion operation [Unknown]
  - Joint arthroplasty [Unknown]
  - Weight loss poor [Unknown]

NARRATIVE: CASE EVENT DATE: 20231031
